FAERS Safety Report 5217032-6 (Version None)
Quarter: 2007Q1

REPORT INFORMATION
  Report Type: 
  Country: None (occurrence: None)
  Receive Date: 20070119
  Receipt Date: 20070108
  Transmission Date: 20070707
  Serious: Yes (Hospitalization, Other)
  Sender: FDA-Public Use
  Company Number: PHFR2007GB00500

PATIENT
  Age: 66 Year
  Sex: Male

DRUGS (7)
  1. DICLOFENAC SODIUM [Suspect]
     Indication: ARTHRITIS
     Dosage: 50 MG, TID, ORAL
     Route: 048
     Dates: end: 20061210
  2. ASPIRIN [Suspect]
     Indication: CARDIOVASCULAR EVENT PROPHYLAXIS
     Dosage: 300 MG, QD, ORAL
     Route: 048
     Dates: end: 20061213
  3. AMLODIPINE [Concomitant]
  4. ATENOLOL [Concomitant]
  5. ATORVASTATIN CALCIUM [Concomitant]
  6. ZOPICLONE (ZOPICLONE) [Concomitant]
  7. OMEPRAZOLE [Concomitant]

REACTIONS (1)
  - GASTRIC ULCER [None]
